FAERS Safety Report 8362468-8 (Version None)
Quarter: 2012Q2

REPORT INFORMATION
  Report Type: 
  Country: None (occurrence: None)
  Receive Date: 20120514
  Receipt Date: 20120514
  Transmission Date: 20120825
  Serious: Yes (Hospitalization)
  Sender: FDA-Public Use
  Company Number: None

PATIENT
  Sex: Female
  Weight: 59 kg

DRUGS (1)
  1. ZOSYN [Suspect]
     Indication: OSTEOMYELITIS
     Dosage: IV
     Route: 042

REACTIONS (7)
  - DIARRHOEA [None]
  - ASTHENIA [None]
  - ABDOMINAL PAIN UPPER [None]
  - SKIN EXFOLIATION [None]
  - RASH [None]
  - OEDEMA PERIPHERAL [None]
  - DRY SKIN [None]
